FAERS Safety Report 7335068-6 (Version None)
Quarter: 2011Q1

REPORT INFORMATION
  Report Type: 
  Country: None (occurrence: None)
  Receive Date: 20110307
  Receipt Date: 20110225
  Transmission Date: 20110831
  Serious: Yes (Hospitalization)
  Sender: FDA-Public Use
  Company Number: US-ROCHE-762875

PATIENT
  Age: 71 Year
  Sex: Female
  Weight: 65.6 kg

DRUGS (4)
  1. DILANTIN [Suspect]
     Route: 065
  2. LISINOPRIL [Concomitant]
  3. TEMOZOLOMIDE [Suspect]
     Indication: GLIOBLASTOMA MULTIFORME
     Dosage: LAST ADMINISTERED DATE: 07 FEBRUARY 2011, TOTAL DOSE: 348 MG
     Route: 048
     Dates: start: 20100712
  4. BLINDED BEVACIZUMAB [Suspect]
     Indication: GLIOBLASTOMA MULTIFORME
     Dosage: DOSE BLINDED: LAST ADMINISTERED DATE: 07 FEBRUARY 2011
     Route: 042
     Dates: start: 20100712

REACTIONS (1)
  - CONVULSION [None]
